FAERS Safety Report 6087422-0 (Version None)
Quarter: 2009Q1

REPORT INFORMATION
  Report Type: 
  Country: None (occurrence: None)
  Receive Date: 20090223
  Receipt Date: 20090217
  Transmission Date: 20090719
  Serious: Yes (Life-Threatening)
  Sender: FDA-Public Use
  Company Number: JP-MERCK-0902USA03428

PATIENT
  Age: 30 Year
  Sex: Female

DRUGS (3)
  1. COZAAR [Suspect]
     Indication: RENAL DISORDER
     Route: 048
     Dates: start: 20080901
  2. ALEVIATIN [Concomitant]
     Indication: EPILEPSY
     Route: 048
     Dates: start: 20070901
  3. ALEVIATIN [Concomitant]
     Route: 048

REACTIONS (1)
  - EPILEPSY [None]
